FAERS Safety Report 6279937-7 (Version None)
Quarter: 2009Q3

REPORT INFORMATION
  Report Type: 
  Country: None (occurrence: None)
  Receive Date: 20090723
  Receipt Date: 20090224
  Transmission Date: 20100115
  Serious: No
  Sender: FDA-Public Use
  Company Number: US-AMGEN-KDL335921

PATIENT
  Sex: Male

DRUGS (2)
  1. PROCRIT [Suspect]
     Indication: PRE-EXISTING DISEASE
     Route: 058
     Dates: start: 20080101
  2. UNSPECIFIED MEDICATION [Concomitant]

REACTIONS (2)
  - ARTHRALGIA [None]
  - GAIT DISTURBANCE [None]
